FAERS Safety Report 17204457 (Version 1)
Quarter: 2019Q4

REPORT INFORMATION
  Report Type: Spontaneous
  Country: BR (occurrence: BR)
  Receive Date: 20191226
  Receipt Date: 20191226
  Transmission Date: 20200122
  Serious: Yes (Other)
  Sender: FDA-Public Use
  Company Number: NVSC2019BR075349

PATIENT
  Sex: Female

DRUGS (6)
  1. FLIXOTIDE 50 INHALER [Suspect]
     Active Substance: FLUTICASONE PROPIONATE
     Indication: PRODUCT USED FOR UNKNOWN INDICATION
     Route: 065
  2. MIFLASONE [Suspect]
     Active Substance: BECLOMETHASONE DIPROPIONATE
     Indication: PRODUCT USED FOR UNKNOWN INDICATION
     Dosage: 3 OT, QD (1 - 3 TIMES A DAY)
     Route: 065
  3. CLENIL-A [Suspect]
     Active Substance: BECLOMETHASONE DIPROPIONATE
     Indication: PRODUCT USED FOR UNKNOWN INDICATION
     Dosage: UNK
     Route: 065
     Dates: start: 2012
  4. LOSARTAN. [Suspect]
     Active Substance: LOSARTAN
     Indication: PRODUCT USED FOR UNKNOWN INDICATION
     Route: 065
  5. RILAN [ACETAMINOPHEN\CHLORPHENIRAMINE MALEATE] [Suspect]
     Active Substance: ACETAMINOPHEN\CHLORPHENIRAMINE MALEATE
     Indication: PRODUCT USED FOR UNKNOWN INDICATION
     Route: 065
  6. PLASIL [Suspect]
     Active Substance: METOCLOPRAMIDE HYDROCHLORIDE
     Indication: PRODUCT USED FOR UNKNOWN INDICATION
     Route: 065

REACTIONS (39)
  - Gastritis [Unknown]
  - Asthma [Unknown]
  - Wheezing [Unknown]
  - Infection [Recovered/Resolved]
  - Dyspnoea [Unknown]
  - Abdominal pain upper [Unknown]
  - Nervousness [Unknown]
  - Ear pain [Unknown]
  - Confusional state [Unknown]
  - Reflux gastritis [Unknown]
  - Spinal pain [Unknown]
  - Neck injury [Unknown]
  - Oesophagitis [Unknown]
  - Dysphagia [Unknown]
  - Tinnitus [Unknown]
  - Cystitis [Unknown]
  - Constipation [Unknown]
  - Asthmatic crisis [Unknown]
  - Hiatus hernia [Unknown]
  - Fatigue [Unknown]
  - Malaise [Unknown]
  - Gastric disorder [Unknown]
  - Chronic obstructive pulmonary disease [Unknown]
  - Chemical poisoning [Unknown]
  - Extrapyramidal disorder [Unknown]
  - Stress [Unknown]
  - Anxiety [Unknown]
  - Dizziness [Unknown]
  - Thirst [Unknown]
  - Headache [Unknown]
  - Pulmonary mass [Unknown]
  - Sinusitis [Unknown]
  - Renal pain [Unknown]
  - Bronchitis [Unknown]
  - Musculoskeletal pain [Unknown]
  - Myalgia [Unknown]
  - Gastric pH decreased [Unknown]
  - Influenza [Unknown]
  - Chest pain [Unknown]

NARRATIVE: CASE EVENT DATE: 2006
